FAERS Safety Report 9682924 (Version 1)
Quarter: 2013Q4

REPORT INFORMATION
  Report Type: Spontaneous
  Country: US (occurrence: US)
  Receive Date: 20131112
  Receipt Date: 20131112
  Transmission Date: 20140711
  Serious: Yes (Other)
  Sender: FDA-Public Use
  Company Number: US-ASTELLAS-2013US011653

PATIENT
  Sex: Female

DRUGS (3)
  1. TARCEVA [Suspect]
     Indication: LUNG NEOPLASM MALIGNANT
     Dosage: UNK
     Route: 065
  2. XARELTO [Suspect]
     Indication: ATRIAL FIBRILLATION
     Dosage: 15 MG OR 20MG, UNKNOWN/D
     Route: 048
  3. ASPIRIN [Suspect]
     Indication: PRODUCT USED FOR UNKNOWN INDICATION
     Dosage: UNK
     Route: 065

REACTIONS (2)
  - Epistaxis [Recovered/Resolved]
  - Lung neoplasm malignant [Unknown]
